FAERS Safety Report 12282914 (Version 1)
Quarter: 2016Q2

REPORT INFORMATION
  Report Type: Spontaneous
  Country: TW (occurrence: TW)
  Receive Date: 20160419
  Receipt Date: 20160419
  Transmission Date: 20160815
  Serious: Yes (Hospitalization)
  Sender: FDA-Public Use
  Company Number: TW-DEPOMED, INC.-TW-2016DEP009369

PATIENT
  Age: 31 Month
  Sex: Male

DRUGS (6)
  1. ACETAMINOPHEN. [Concomitant]
     Active Substance: ACETAMINOPHEN
     Indication: PYREXIA
     Dosage: UNK
  2. ACETAMINOPHEN. [Concomitant]
     Active Substance: ACETAMINOPHEN
     Indication: OROPHARYNGEAL PAIN
  3. CEFTRIAXONE                        /00672202/ [Concomitant]
     Active Substance: CEFTRIAXONE
     Indication: ANTIBIOTIC THERAPY
     Dosage: UNK
     Route: 042
  4. CEPHALEXIN                         /00145501/ [Concomitant]
     Active Substance: CEPHALEXIN
     Indication: ANTIBIOTIC THERAPY
     Dosage: UNK
  5. DICLOFENAC [Suspect]
     Active Substance: DICLOFENAC
     Indication: PYREXIA
     Dosage: 1.6 MG/KG, QD
  6. DICLOFENAC [Suspect]
     Active Substance: DICLOFENAC
     Indication: OROPHARYNGEAL PAIN

REACTIONS (8)
  - Abdominal pain [Recovered/Resolved]
  - Large intestine perforation [Recovered/Resolved]
  - Abdominal distension [Recovered/Resolved]
  - Abdominal abscess [Recovered/Resolved]
  - Pneumoperitoneum [Recovered/Resolved]
  - Ileus [Recovered/Resolved]
  - Peritonitis [Recovered/Resolved]
  - Abdominal rigidity [Recovered/Resolved]
